FAERS Safety Report 8486922-3 (Version None)
Quarter: 2012Q3

REPORT INFORMATION
  Report Type: 
  Country: None (occurrence: None)
  Receive Date: 20120704
  Receipt Date: 20120628
  Transmission Date: 20120928
  Serious: Yes (Other)
  Sender: FDA-Public Use
  Company Number: CA-BRISTOL-MYERS SQUIBB COMPANY-15702996

PATIENT
  Age: 61 Year
  Sex: Male

DRUGS (3)
  1. BLINDED: SAXAGLIPTIN [Suspect]
     Indication: TYPE 2 DIABETES MELLITUS
     Dates: start: 20101021
  2. INHIBACE [Suspect]
  3. PLACEBO [Suspect]
     Indication: TYPE 2 DIABETES MELLITUS

REACTIONS (1)
  - ANGIOEDEMA [None]
